FAERS Safety Report 16838670 (Version 1)
Quarter: 2019Q3

REPORT INFORMATION
  Report Type: Spontaneous
  Country: US (occurrence: US)
  Receive Date: 20190731
  Receipt Date: 20190731
  Transmission Date: 20191005
  Serious: No
  Sender: FDA-Public Use
  Company Number: None

PATIENT

DRUGS (2)
  1. IRINOTECAN HCL [Suspect]
     Active Substance: IRINOTECAN HYDROCHLORIDE
     Dosage: ?          OTHER DOSE:5ML SNGL-DOSE VIAL;?
  2. PACLITAXEL. [Suspect]
     Active Substance: PACLITAXEL
     Dosage: ?          OTHER DOSE:5ML MULTIDOSE VIAL;?

REACTIONS (1)
  - Product appearance confusion [None]
